FAERS Safety Report 9249259 (Version 1)
Quarter: 2013Q2

REPORT INFORMATION
  Report Type: Spontaneous
  Country: AU (occurrence: AU)
  Receive Date: 20130423
  Receipt Date: 20130423
  Transmission Date: 20140414
  Serious: Yes (Other)
  Sender: FDA-Public Use
  Company Number: PHHY2013AU038624

PATIENT
  Age: 42 Year
  Sex: Female

DRUGS (6)
  1. CARBAMAZEPINE [Suspect]
  2. CLARITHROMYCIN [Suspect]
  3. LAMOTRIGINE [Suspect]
  4. CLONAZEPAM [Suspect]
  5. NITRAZEPAM [Suspect]
  6. CHOLECALCIFEROL [Suspect]

REACTIONS (1)
  - Toxicity to various agents [Unknown]
